FAERS Safety Report 13618813 (Version 2)
Quarter: 2017Q3

REPORT INFORMATION
  Report Type: Report from Study
  Country: US (occurrence: US)
  Receive Date: 20170606
  Receipt Date: 20170712
  Transmission Date: 20171127
  Serious: Yes (Hospitalization)
  Sender: FDA-Public Use
  Company Number: US-ACTELION-A-NJ2017-148261

PATIENT
  Age: 37 Year
  Sex: Female
  Weight: 79.37 kg

DRUGS (7)
  1. TADALAFIL [Concomitant]
     Active Substance: TADALAFIL
  2. PREDNISONE. [Suspect]
     Active Substance: PREDNISONE
     Indication: PRODUCT USED FOR UNKNOWN INDICATION
     Dosage: UNK
     Route: 065
     Dates: start: 20161228
  3. OPSUMIT [Suspect]
     Active Substance: MACITENTAN
     Indication: PULMONARY HYPERTENSION
     Dosage: 10 MG, QD
     Route: 048
     Dates: end: 20170407
  4. ALDACTONE [Concomitant]
     Active Substance: SPIRONOLACTONE
  5. LASIX [Concomitant]
     Active Substance: FUROSEMIDE
  6. LETAIRIS [Concomitant]
     Active Substance: AMBRISENTAN
  7. TYVASO [Concomitant]
     Active Substance: TREPROSTINIL

REACTIONS (21)
  - Myalgia [Recovered/Resolved]
  - Nasal congestion [Recovered/Resolved]
  - Back pain [Recovered/Resolved]
  - Nervousness [Recovered/Resolved]
  - Fatigue [Recovered/Resolved]
  - Oxygen saturation decreased [Unknown]
  - Anxiety [Recovered/Resolved]
  - Acute respiratory distress syndrome [Recovered/Resolved]
  - Dyspnoea [Recovered/Resolved]
  - Diarrhoea [Recovered/Resolved]
  - Chest pain [Recovered/Resolved]
  - Hypoxia [Unknown]
  - Frequent bowel movements [Unknown]
  - Pneumonia [Unknown]
  - Oedema peripheral [Recovered/Resolved]
  - Pulmonary hypertension [Unknown]
  - Cough [Recovered/Resolved]
  - Abdominal tenderness [Recovered/Resolved]
  - Asthenia [Recovered/Resolved]
  - Arthralgia [Recovered/Resolved]
  - Malaise [Recovered/Resolved]

NARRATIVE: CASE EVENT DATE: 20161228
